FAERS Safety Report 15016362 (Version 6)
Quarter: 2019Q3

REPORT INFORMATION
  Report Type: Report from Study
  Country: DE (occurrence: DE)
  Receive Date: 20180615
  Receipt Date: 20190919
  Transmission Date: 20191004
  Serious: Yes (Hospitalization, Other)
  Sender: FDA-Public Use
  Company Number: DE-JNJFOC-20180503844

PATIENT
  Age: 66 Year
  Sex: Male
  Weight: 85 kg

DRUGS (139)
  1. RITUXIMAB. [Suspect]
     Active Substance: RITUXIMAB
     Indication: DIFFUSE LARGE B-CELL LYMPHOMA
     Dosage: 740 MG, (INFUSION RATE 4.2 ML/MIN FROM 07:30 TO 09:30)
     Route: 041
     Dates: start: 20180612, end: 20180612
  2. RITUXIMAB. [Suspect]
     Active Substance: RITUXIMAB
     Dosage: 740 MG, (INFUSION RATE 1.7 ML/MIN FROM 07:30 TO 11:30)
     Route: 041
     Dates: start: 20180219, end: 20180219
  3. CYCLOPHOSPHAMIDE. [Suspect]
     Active Substance: CYCLOPHOSPHAMIDE
     Dosage: 1480 MG, (INFUSION RATE 4.17 ML/MIN FROM 07:35 TO 09:35)
     Route: 042
     Dates: start: 20180313, end: 20180313
  4. PARACETAMOL [Concomitant]
     Active Substance: ACETAMINOPHEN
     Route: 048
     Dates: start: 20180220, end: 20180220
  5. PARACETAMOL [Concomitant]
     Active Substance: ACETAMINOPHEN
     Route: 048
     Dates: start: 20180703, end: 20180703
  6. CLEMASTINE [Concomitant]
     Active Substance: CLEMASTINE
     Route: 042
     Dates: start: 20180312, end: 20180312
  7. CLEMASTINE [Concomitant]
     Active Substance: CLEMASTINE
     Route: 042
     Dates: start: 20180807, end: 20180807
  8. AMPHO MORONAL [Concomitant]
     Active Substance: AMPHOTERICIN B
     Indication: PROPHYLAXIS
     Route: 048
     Dates: start: 20180213, end: 20180409
  9. AMPHO MORONAL [Concomitant]
     Active Substance: AMPHOTERICIN B
     Route: 048
     Dates: start: 20180312, end: 20180318
  10. AMPHO MORONAL [Concomitant]
     Active Substance: AMPHOTERICIN B
     Route: 048
     Dates: start: 20180522, end: 20180528
  11. RANITIDINE. [Concomitant]
     Active Substance: RANITIDINE
     Route: 042
     Dates: start: 20180807, end: 20180807
  12. KEVATRIL [Concomitant]
     Active Substance: GRANISETRON HYDROCHLORIDE
     Indication: PROPHYLAXIS
     Route: 042
     Dates: start: 20180221, end: 20180221
  13. KEVATRIL [Concomitant]
     Active Substance: GRANISETRON HYDROCHLORIDE
     Route: 042
     Dates: start: 20180404, end: 20180404
  14. CAELYX [Suspect]
     Active Substance: DOXORUBICIN HYDROCHLORIDE
     Indication: DIFFUSE LARGE B-CELL LYMPHOMA
     Dosage: 99 MG, (INFUSION RATE 8.3 ML/MIN FROM 10:00 TO 10:30)
     Route: 041
     Dates: start: 20180221, end: 20180404
  15. CAELYX [Suspect]
     Active Substance: DOXORUBICIN HYDROCHLORIDE
     Dosage: 99 MG, (INFUSION RATE 8.3 ML/MIN FROM 10:00 TO 10:30)
     Route: 041
     Dates: start: 20180503, end: 20180503
  16. CAELYX [Suspect]
     Active Substance: DOXORUBICIN HYDROCHLORIDE
     Dosage: 99 MG, (INFUSION RATE 8.3 ML/MIN FROM 10:00 TO 10:30)
     Route: 041
     Dates: start: 20180808, end: 20180808
  17. RITUXIMAB. [Suspect]
     Active Substance: RITUXIMAB
     Dosage: 740 MG, (INFUSION RATE 4.17 ML/MIN FROM 07:30 TO 09:30)
     Route: 041
     Dates: start: 20180502, end: 20180502
  18. CYCLOPHOSPHAMIDE. [Suspect]
     Active Substance: CYCLOPHOSPHAMIDE
     Indication: DIFFUSE LARGE B-CELL LYMPHOMA
     Dosage: 1480 MG, UNK
     Route: 041
     Dates: start: 20180808, end: 20180808
  19. CYCLOPHOSPHAMIDE. [Suspect]
     Active Substance: CYCLOPHOSPHAMIDE
     Dosage: 1480 MG, (INFUSION RATE 4.2 ML/MIN FROM 08:00 TO 10:00)
     Route: 041
     Dates: start: 20180704, end: 20180704
  20. PREDNISONE. [Suspect]
     Active Substance: PREDNISONE
     Dosage: 500 MG, UNK
     Route: 048
     Dates: start: 20180221, end: 20180225
  21. PARACETAMOL [Concomitant]
     Active Substance: ACETAMINOPHEN
     Route: 048
     Dates: start: 20180502, end: 20180502
  22. ACICLOVIR [Concomitant]
     Active Substance: ACYCLOVIR
     Route: 048
     Dates: start: 20180219
  23. PREDNISOLONE SODIUM SUCCINATE [Concomitant]
     Active Substance: PREDNISOLONE SODIUM SUCCINATE
     Route: 042
     Dates: start: 20180312, end: 20180312
  24. PANTOZOL [Concomitant]
     Active Substance: PANTOPRAZOLE SODIUM
     Indication: PROPHYLAXIS
     Route: 048
     Dates: start: 20180219
  25. KEVATRIL [Concomitant]
     Active Substance: GRANISETRON HYDROCHLORIDE
     Route: 042
     Dates: start: 20180405, end: 20180405
  26. KEVATRIL [Concomitant]
     Active Substance: GRANISETRON HYDROCHLORIDE
     Route: 042
     Dates: start: 20180808, end: 20180808
  27. NEULASTA [Concomitant]
     Active Substance: PEGFILGRASTIM
     Route: 058
     Dates: start: 20180615, end: 20180615
  28. CAELYX [Suspect]
     Active Substance: DOXORUBICIN HYDROCHLORIDE
     Dosage: 99 MG, (INFUSION RATE 8.3 ML/MIN FROM 10:00 TO 10:30)
     Route: 041
     Dates: start: 20180221, end: 20180221
  29. CAELYX [Suspect]
     Active Substance: DOXORUBICIN HYDROCHLORIDE
     Dosage: 99 MG, (INFUSION RATE 8.3 ML/MIN FROM 10:00 TO 10:30)
     Route: 041
     Dates: start: 20180404, end: 20180404
  30. CAELYX [Suspect]
     Active Substance: DOXORUBICIN HYDROCHLORIDE
     Dosage: 99 MG, (INFUSION RATE 8.3 ML/MIN FROM 10:00 TO 10:30)
     Route: 041
     Dates: start: 20180523, end: 20180523
  31. RITUXIMAB. [Suspect]
     Active Substance: RITUXIMAB
     Dosage: 600 MG, (INFUSION RATE 2.78 ML/MIN FROM 07:30 TO 10:30)
     Route: 041
     Dates: start: 20180312, end: 20180312
  32. CYCLOPHOSPHAMIDE. [Suspect]
     Active Substance: CYCLOPHOSPHAMIDE
     Dosage: 1480 MG, (INFUSION RATE 4.17 ML/MIN FROM 07:35 TO 09:35)
     Route: 042
     Dates: start: 20180503, end: 20180503
  33. PREDNISONE. [Suspect]
     Active Substance: PREDNISONE
     Dosage: 400 MG, UNK
     Route: 048
     Dates: start: 20180404, end: 20180407
  34. PARACETAMOL [Concomitant]
     Active Substance: ACETAMINOPHEN
     Route: 042
     Dates: start: 20180807, end: 20180807
  35. CLEMASTINE [Concomitant]
     Active Substance: CLEMASTINE
     Route: 042
     Dates: start: 20180502, end: 20180502
  36. CLEMASTINE [Concomitant]
     Active Substance: CLEMASTINE
     Route: 042
     Dates: start: 20180612, end: 20180612
  37. CLEMASTINE [Concomitant]
     Active Substance: CLEMASTINE
     Route: 042
     Dates: start: 20180703, end: 20180703
  38. MESNA. [Concomitant]
     Active Substance: MESNA
     Route: 042
     Dates: start: 20180503, end: 20180503
  39. MESNA. [Concomitant]
     Active Substance: MESNA
     Route: 042
     Dates: start: 20180704, end: 20180704
  40. RANITIDINE. [Concomitant]
     Active Substance: RANITIDINE
     Indication: PROPHYLAXIS
     Route: 042
     Dates: start: 20180219, end: 20180413
  41. RANITIDINE. [Concomitant]
     Active Substance: RANITIDINE
     Route: 042
     Dates: start: 20180219, end: 20180219
  42. RANITIDINE. [Concomitant]
     Active Substance: RANITIDINE
     Route: 042
     Dates: start: 20180220, end: 20180220
  43. RANITIDINE. [Concomitant]
     Active Substance: RANITIDINE
     Route: 042
     Dates: start: 20180312, end: 20180312
  44. BISOPROLOL [Concomitant]
     Active Substance: BISOPROLOL
     Route: 048
     Dates: start: 20180720
  45. PREDNISOLONE SODIUM SUCCINATE [Concomitant]
     Active Substance: PREDNISOLONE SODIUM SUCCINATE
     Indication: PROPHYLAXIS
     Route: 042
     Dates: start: 20180219, end: 20180403
  46. PREDNISOLONE SODIUM SUCCINATE [Concomitant]
     Active Substance: PREDNISOLONE SODIUM SUCCINATE
     Route: 042
     Dates: start: 20180219, end: 20180219
  47. KEVATRIL [Concomitant]
     Active Substance: GRANISETRON HYDROCHLORIDE
     Route: 042
     Dates: start: 20180504, end: 20180504
  48. KEVATRIL [Concomitant]
     Active Substance: GRANISETRON HYDROCHLORIDE
     Route: 042
     Dates: start: 20180613, end: 20180613
  49. KEVATRIL [Concomitant]
     Active Substance: GRANISETRON HYDROCHLORIDE
     Route: 042
     Dates: start: 20180705, end: 20180705
  50. SALBUTAMOL [Concomitant]
     Active Substance: ALBUTEROL
     Route: 048
  51. NEULASTA [Concomitant]
     Active Substance: PEGFILGRASTIM
     Route: 058
     Dates: start: 20180514, end: 20180514
  52. NEULASTA [Concomitant]
     Active Substance: PEGFILGRASTIM
     Route: 058
     Dates: start: 20180706, end: 20180706
  53. CAELYX [Suspect]
     Active Substance: DOXORUBICIN HYDROCHLORIDE
     Dosage: 99 MG, (INFUSION RATE 8.3 ML/MIN FROM 10:00 TO 10:30)
     Route: 041
     Dates: start: 20180704, end: 20180704
  54. VINCRISTINE [Suspect]
     Active Substance: VINCRISTINE
     Dosage: 2 MG, (INFUSION RATE 2 ML/MIN FROM 07:55 TO 08:00)
     Route: 041
     Dates: start: 20180613, end: 20180613
  55. VINCRISTINE [Suspect]
     Active Substance: VINCRISTINE
     Dosage: 2 MG, (INFUSION RATE 2 ML/MIN FROM 07:30 TO 07:35)
     Route: 041
     Dates: start: 20180503, end: 20180503
  56. RITUXIMAB. [Suspect]
     Active Substance: RITUXIMAB
     Dosage: 740 MG, (INFUSION RATE 4.2 ML/MIN FROM 08:00 TO 10:00)
     Route: 041
     Dates: start: 20180522, end: 20180522
  57. RITUXIMAB. [Suspect]
     Active Substance: RITUXIMAB
     Dosage: 740 MG, UNK
     Route: 041
     Dates: start: 20180807, end: 20180807
  58. PREDNISONE. [Suspect]
     Active Substance: PREDNISONE
     Dosage: 400 MG, UNK
     Route: 048
     Dates: start: 20180704, end: 20180707
  59. PARACETAMOL [Concomitant]
     Active Substance: ACETAMINOPHEN
     Route: 048
     Dates: start: 20180312, end: 20180312
  60. CLEMASTINE [Concomitant]
     Active Substance: CLEMASTINE
     Indication: PROPHYLAXIS
     Route: 042
     Dates: start: 20180219, end: 20180403
  61. CLEMASTINE [Concomitant]
     Active Substance: CLEMASTINE
     Route: 042
     Dates: start: 20180403, end: 20180403
  62. RANITIDINE. [Concomitant]
     Active Substance: RANITIDINE
     Route: 042
     Dates: start: 20180502, end: 20180522
  63. PREDNISOLONE SODIUM SUCCINATE [Concomitant]
     Active Substance: PREDNISOLONE SODIUM SUCCINATE
     Route: 042
     Dates: start: 20180403, end: 20180403
  64. PREDNISOLONE SODIUM SUCCINATE [Concomitant]
     Active Substance: PREDNISOLONE SODIUM SUCCINATE
     Route: 042
     Dates: start: 20180612, end: 20180612
  65. PREDNISOLONE SODIUM SUCCINATE [Concomitant]
     Active Substance: PREDNISOLONE SODIUM SUCCINATE
     Route: 042
     Dates: start: 20180703, end: 20180703
  66. KEVATRIL [Concomitant]
     Active Substance: GRANISETRON HYDROCHLORIDE
     Route: 042
     Dates: start: 20180808, end: 20180808
  67. SALBUTAMOL [Concomitant]
     Active Substance: ALBUTEROL
     Indication: ASTHMA
     Route: 048
     Dates: start: 201711
  68. NEULASTA [Concomitant]
     Active Substance: PEGFILGRASTIM
     Indication: PROPHYLAXIS
     Route: 058
     Dates: start: 20180505, end: 20180523
  69. CAELYX [Suspect]
     Active Substance: DOXORUBICIN HYDROCHLORIDE
     Dosage: 99 MG, (INFUSION RATE 8.3 ML/MIN FROM 10:00 TO 10:30)
     Route: 041
     Dates: start: 20180613, end: 20180613
  70. VINCRISTINE [Suspect]
     Active Substance: VINCRISTINE
     Indication: DIFFUSE LARGE B-CELL LYMPHOMA
     Dosage: 2 MG, UNK
     Route: 041
     Dates: start: 20180808, end: 20180808
  71. VINCRISTINE [Suspect]
     Active Substance: VINCRISTINE
     Dosage: 2 MG, (INFUSION RATE 2 ML/MIN FROM 07:30 TO 07:35)
     Route: 041
     Dates: start: 20180221, end: 20180221
  72. RITUXIMAB. [Suspect]
     Active Substance: RITUXIMAB
     Dosage: 740 MG, (INFUSION RATE 8.3 ML/MIN FROM 07:30 TO 09:30)
     Route: 041
     Dates: start: 20180403, end: 20180403
  73. PREDNISONE. [Suspect]
     Active Substance: PREDNISONE
     Dosage: 500 MG, UNK
     Route: 048
     Dates: start: 20180313, end: 20180317
  74. PARACETAMOL [Concomitant]
     Active Substance: ACETAMINOPHEN
     Indication: PROPHYLAXIS
     Route: 048
     Dates: start: 20180219, end: 20180403
  75. PARACETAMOL [Concomitant]
     Active Substance: ACETAMINOPHEN
     Route: 048
     Dates: start: 20180219, end: 20180219
  76. PARACETAMOL [Concomitant]
     Active Substance: ACETAMINOPHEN
     Route: 048
     Dates: start: 20180522, end: 20180522
  77. CLEMASTINE [Concomitant]
     Active Substance: CLEMASTINE
     Route: 042
     Dates: start: 20180220, end: 20180220
  78. AMPHO MORONAL [Concomitant]
     Active Substance: AMPHOTERICIN B
     Route: 048
     Dates: start: 20180612, end: 20180618
  79. RANITIDINE. [Concomitant]
     Active Substance: RANITIDINE
     Route: 042
     Dates: start: 20180522, end: 20180522
  80. RANITIDINE. [Concomitant]
     Active Substance: RANITIDINE
     Route: 042
     Dates: start: 20180612, end: 20180612
  81. PREDNISOLONE SODIUM SUCCINATE [Concomitant]
     Active Substance: PREDNISOLONE SODIUM SUCCINATE
     Route: 042
     Dates: start: 20180522, end: 20180522
  82. PREDNISOLONE SODIUM SUCCINATE [Concomitant]
     Active Substance: PREDNISOLONE SODIUM SUCCINATE
     Route: 042
     Dates: start: 20180807, end: 20180807
  83. KEVATRIL [Concomitant]
     Active Substance: GRANISETRON HYDROCHLORIDE
     Route: 042
     Dates: start: 20180503, end: 20180503
  84. KEVATRIL [Concomitant]
     Active Substance: GRANISETRON HYDROCHLORIDE
     Route: 042
     Dates: start: 20180523, end: 20180523
  85. KEVATRIL [Concomitant]
     Active Substance: GRANISETRON HYDROCHLORIDE
     Route: 042
     Dates: start: 20180524, end: 20180524
  86. NEULASTA [Concomitant]
     Active Substance: PEGFILGRASTIM
     Route: 058
     Dates: start: 20180525, end: 20180525
  87. NEULASTA [Concomitant]
     Active Substance: PEGFILGRASTIM
     Route: 058
     Dates: start: 20180810, end: 20180810
  88. CAELYX [Suspect]
     Active Substance: DOXORUBICIN HYDROCHLORIDE
     Dosage: 99 MG, (INFUSION RATE 8.3 ML/MIN FROM 10:00 TO 10:30)
     Route: 041
     Dates: start: 20180503, end: 20180523
  89. VINCRISTINE [Suspect]
     Active Substance: VINCRISTINE
     Dosage: 2 MG, (INFUSION RATE 2 ML/MIN FROM 07:55 TO 08:00)
     Route: 041
     Dates: start: 20180704, end: 20180704
  90. VINCRISTINE [Suspect]
     Active Substance: VINCRISTINE
     Dosage: 2 MG, (INFUSION RATE 2 ML/MIN FROM 07:30 TO 07:35)
     Route: 041
     Dates: start: 20180313, end: 20180313
  91. VINCRISTINE [Suspect]
     Active Substance: VINCRISTINE
     Dosage: 2 MG, (INFUSION RATE 2 ML/MIN FROM 07:55 TO 08:00)
     Route: 041
     Dates: start: 20180523, end: 20180523
  92. CYCLOPHOSPHAMIDE. [Suspect]
     Active Substance: CYCLOPHOSPHAMIDE
     Dosage: 1480 MG, (INFUSION RATE 8.3 ML/MIN FROM 07:35 TO 09:35)
     Route: 042
     Dates: start: 20180404, end: 20180404
  93. CYCLOPHOSPHAMIDE. [Suspect]
     Active Substance: CYCLOPHOSPHAMIDE
     Dosage: 1480 MG, (INFUSION RATE 8.1 ML/MIN FROM 07:35 TO 10:35)
     Route: 042
     Dates: start: 20180221, end: 20180221
  94. PREDNISONE. [Suspect]
     Active Substance: PREDNISONE
     Dosage: 400 MG, UNK
     Route: 048
     Dates: start: 20180613, end: 20180616
  95. PREDNISONE. [Suspect]
     Active Substance: PREDNISONE
     Dosage: 400 MG, UNK
     Route: 048
     Dates: start: 20180503, end: 20180506
  96. PARACETAMOL [Concomitant]
     Active Substance: ACETAMINOPHEN
     Route: 048
     Dates: start: 20180612, end: 20180612
  97. AMPHO MORONAL [Concomitant]
     Active Substance: AMPHOTERICIN B
     Route: 048
     Dates: start: 20180219, end: 20180226
  98. PREDNISOLONE SODIUM SUCCINATE [Concomitant]
     Active Substance: PREDNISOLONE SODIUM SUCCINATE
     Route: 042
     Dates: start: 20180213, end: 20180218
  99. PREDNISOLONE SODIUM SUCCINATE [Concomitant]
     Active Substance: PREDNISOLONE SODIUM SUCCINATE
     Route: 042
     Dates: start: 20180502, end: 20180522
  100. COTRIM [Concomitant]
     Active Substance: SULFAMETHOXAZOLE\TRIMETHOPRIM
     Indication: PROPHYLAXIS
     Dosage: 3 DAYS WEEKLY
     Route: 048
     Dates: start: 20180219
  101. KEVATRIL [Concomitant]
     Active Substance: GRANISETRON HYDROCHLORIDE
     Route: 042
     Dates: start: 20180314, end: 20180314
  102. SILAPO [Concomitant]
     Route: 058
     Dates: start: 20180503
  103. CAELYX [Suspect]
     Active Substance: DOXORUBICIN HYDROCHLORIDE
     Dosage: 99 MG, (INFUSION RATE 8.3 ML/MIN FROM 10:00 TO 10:30)
     Route: 041
     Dates: start: 20180313, end: 20180313
  104. CYCLOPHOSPHAMIDE. [Suspect]
     Active Substance: CYCLOPHOSPHAMIDE
     Dosage: 1480 MG, (INFUSION RATE 4.2 ML/MIN FROM 08:00 TO 10:00)
     Route: 042
     Dates: start: 20180523, end: 20180523
  105. CYCLOPHOSPHAMIDE. [Suspect]
     Active Substance: CYCLOPHOSPHAMIDE
     Dosage: 1480 MG, (INFUSION RATE 4.2 ML/MIN FROM 08:00 TO 10:00)
     Route: 042
     Dates: start: 20180613, end: 20180613
  106. PARACETAMOL [Concomitant]
     Active Substance: ACETAMINOPHEN
     Route: 048
     Dates: start: 20180502, end: 20180502
  107. CLEMASTINE [Concomitant]
     Active Substance: CLEMASTINE
     Route: 042
     Dates: start: 20180502, end: 20180522
  108. CLEMASTINE [Concomitant]
     Active Substance: CLEMASTINE
     Route: 042
     Dates: start: 20180522, end: 20180522
  109. MESNA. [Concomitant]
     Active Substance: MESNA
     Indication: PROPHYLAXIS
     Route: 042
     Dates: start: 20180221, end: 20180404
  110. MESNA. [Concomitant]
     Active Substance: MESNA
     Route: 042
     Dates: start: 20180313, end: 20180313
  111. MESNA. [Concomitant]
     Active Substance: MESNA
     Route: 042
     Dates: start: 20180503, end: 20180523
  112. MESNA. [Concomitant]
     Active Substance: MESNA
     Route: 042
     Dates: start: 20180523, end: 20180523
  113. ALLOPURINOL. [Concomitant]
     Active Substance: ALLOPURINOL
     Indication: PROPHYLAXIS
     Route: 048
     Dates: start: 20180213, end: 20180311
  114. AMPHO MORONAL [Concomitant]
     Active Substance: AMPHOTERICIN B
     Route: 048
     Dates: start: 20180403, end: 20180409
  115. RANITIDINE. [Concomitant]
     Active Substance: RANITIDINE
     Route: 042
     Dates: start: 20180502, end: 20180502
  116. RANITIDINE. [Concomitant]
     Active Substance: RANITIDINE
     Route: 042
     Dates: start: 20180703, end: 20180703
  117. PREDNISOLONE SODIUM SUCCINATE [Concomitant]
     Active Substance: PREDNISOLONE SODIUM SUCCINATE
     Route: 042
     Dates: start: 20180502, end: 20180502
  118. KEVATRIL [Concomitant]
     Active Substance: GRANISETRON HYDROCHLORIDE
     Route: 042
     Dates: start: 20180614, end: 20180614
  119. KEVATRIL [Concomitant]
     Active Substance: GRANISETRON HYDROCHLORIDE
     Route: 042
     Dates: start: 20180407, end: 20180407
  120. NEULASTA [Concomitant]
     Active Substance: PEGFILGRASTIM
     Route: 058
     Dates: start: 20180505, end: 20180505
  121. VINCRISTINE [Suspect]
     Active Substance: VINCRISTINE
     Dosage: 2 MG, (INFUSION RATE 2 ML/MIN FROM 07:30 TO 07:35)
     Route: 041
     Dates: start: 20180404, end: 20180404
  122. RITUXIMAB. [Suspect]
     Active Substance: RITUXIMAB
     Dosage: 740 MG, (INFUSION RATE 4.2 ML/MIN FROM 08:00 TO 10:00)
     Route: 041
     Dates: start: 20180703, end: 20180703
  123. PREDNISONE. [Suspect]
     Active Substance: PREDNISONE
     Indication: DIFFUSE LARGE B-CELL LYMPHOMA
     Dosage: 400 MG, UNK
     Route: 048
     Dates: start: 20180523, end: 20180526
  124. PREDNISONE. [Suspect]
     Active Substance: PREDNISONE
     Dosage: 400 MG, UNK
     Route: 048
     Dates: start: 20180808, end: 20180811
  125. PARACETAMOL [Concomitant]
     Active Substance: ACETAMINOPHEN
     Route: 048
     Dates: start: 20180502, end: 20180522
  126. PARACETAMOL [Concomitant]
     Active Substance: ACETAMINOPHEN
     Route: 048
     Dates: start: 20180403, end: 20180403
  127. CLEMASTINE [Concomitant]
     Active Substance: CLEMASTINE
     Route: 042
     Dates: start: 20180219, end: 20180219
  128. MESNA. [Concomitant]
     Active Substance: MESNA
     Route: 042
     Dates: start: 20180221, end: 20180221
  129. MESNA. [Concomitant]
     Active Substance: MESNA
     Route: 042
     Dates: start: 20180404, end: 20180404
  130. MESNA. [Concomitant]
     Active Substance: MESNA
     Route: 042
     Dates: start: 20180613, end: 20180613
  131. MESNA. [Concomitant]
     Active Substance: MESNA
     Route: 042
     Dates: start: 20180808, end: 20180808
  132. AMPHO MORONAL [Concomitant]
     Active Substance: AMPHOTERICIN B
     Route: 048
     Dates: start: 20180502, end: 20180509
  133. AMPHO MORONAL [Concomitant]
     Active Substance: AMPHOTERICIN B
     Route: 048
     Dates: start: 20180703, end: 20180703
  134. AMPHO MORONAL [Concomitant]
     Active Substance: AMPHOTERICIN B
     Route: 048
     Dates: start: 20180807, end: 20180807
  135. RANITIDINE. [Concomitant]
     Active Substance: RANITIDINE
     Route: 042
     Dates: start: 20180403, end: 20180403
  136. BISOPROLOL [Concomitant]
     Active Substance: BISOPROLOL
     Indication: HYPERTENSION
     Route: 048
     Dates: start: 20170830, end: 20180719
  137. PREDNISOLONE SODIUM SUCCINATE [Concomitant]
     Active Substance: PREDNISOLONE SODIUM SUCCINATE
     Route: 042
     Dates: start: 20180220, end: 20180220
  138. KEVATRIL [Concomitant]
     Active Substance: GRANISETRON HYDROCHLORIDE
     Route: 042
     Dates: start: 20180222, end: 20180222
  139. KEVATRIL [Concomitant]
     Active Substance: GRANISETRON HYDROCHLORIDE
     Route: 042
     Dates: start: 20180313, end: 20180313

REACTIONS (21)
  - Chest pain [Unknown]
  - Pyrexia [Unknown]
  - Vitamin D decreased [Not Recovered/Not Resolved]
  - Pain [Recovered/Resolved]
  - Nausea [Recovered/Resolved]
  - Deep vein thrombosis [Recovered/Resolved]
  - Chills [Unknown]
  - Polyneuropathy [Not Recovered/Not Resolved]
  - Fibrin D dimer increased [Unknown]
  - Lymphoedema [Recovered/Resolved]
  - Oedema peripheral [Recovered/Resolved]
  - Asthma [Recovered/Resolved]
  - Leukopenia [Recovered/Resolved]
  - Dizziness [Recovered/Resolved]
  - Pulpitis dental [Recovered/Resolved]
  - Neutropenic sepsis [Recovered/Resolved]
  - Neutropenia [Unknown]
  - Anaemia [Not Recovered/Not Resolved]
  - Product use in unapproved indication [Unknown]
  - Off label use [Unknown]
  - C-reactive protein increased [Recovered/Resolved]

NARRATIVE: CASE EVENT DATE: 20180219
